FAERS Safety Report 5576540-9 (Version None)
Quarter: 2007Q4

REPORT INFORMATION
  Report Type: 
  Country: None (occurrence: None)
  Receive Date: 20071228
  Receipt Date: 20071213
  Transmission Date: 20080405
  Serious: Yes (Hospitalization)
  Sender: FDA-Public Use
  Company Number: B0500693A

PATIENT
  Age: 71 Year
  Sex: Female

DRUGS (7)
  1. LAPATINIB [Suspect]
     Dosage: 1250MG PER DAY
     Route: 048
  2. XELODA [Suspect]
     Dosage: 2000MGM2 PER DAY
     Route: 048
  3. CLASTOBAN [Concomitant]
     Route: 048
     Dates: end: 20071001
  4. ZOMETA [Concomitant]
     Route: 042
  5. CARDENSIEL [Concomitant]
     Dosage: 2.5MG TWICE PER DAY
     Route: 065
  6. RAMIPRIL [Concomitant]
     Dosage: 2.5MG TWICE PER DAY
     Route: 065
  7. MOPRAL [Concomitant]
     Dosage: 20MG PER DAY
     Route: 065

REACTIONS (14)
  - ANOREXIA [None]
  - ARTHRALGIA [None]
  - BLOOD CREATININE ABNORMAL [None]
  - BLOOD UREA ABNORMAL [None]
  - DEHYDRATION [None]
  - DIARRHOEA [None]
  - DYSPNOEA [None]
  - ERYTHEMA [None]
  - GENERAL PHYSICAL HEALTH DETERIORATION [None]
  - HAEMOGLOBIN DECREASED [None]
  - HYPOKALAEMIA [None]
  - MUSCULOSKELETAL PAIN [None]
  - SUDDEN HEARING LOSS [None]
  - WEIGHT DECREASED [None]
